FAERS Safety Report 23692475 (Version 1)
Quarter: 2024Q1

REPORT INFORMATION
  Report Type: Spontaneous
  Country: US (occurrence: None)
  Receive Date: 20240329
  Receipt Date: 20240329
  Transmission Date: 20240410
  Serious: No
  Sender: FDA-Public Use
  Company Number: None

PATIENT
  Age: 39 Year
  Sex: Female

DRUGS (5)
  1. SKYRIZI [Suspect]
     Active Substance: RISANKIZUMAB-RZAA
     Dosage: OTHER FREQUENCY : EVERY8WEEKS;?
     Route: 058
     Dates: start: 20230531
  2. BUDESONIDE [Concomitant]
  3. DIAZEPAM [Concomitant]
  4. ESZOPICIONE [Concomitant]
  5. VITAMIN D3 [Concomitant]

REACTIONS (4)
  - Arthralgia [None]
  - Pain in extremity [None]
  - Pain in extremity [None]
  - Myalgia [None]
